FAERS Safety Report 9266580 (Version 6)
Quarter: 2014Q2

REPORT INFORMATION
  Report Type: Report from Study
  Country: CA (occurrence: CA)
  Receive Date: 20130502
  Receipt Date: 20140625
  Transmission Date: 20141212
  Serious: Yes (Hospitalization, Other)
  Sender: FDA-Public Use
  Company Number: PHHY2013CA043194

PATIENT
  Age: 66 Year
  Sex: Female

DRUGS (10)
  1. TASIGNA [Suspect]
     Indication: CHRONIC MYELOID LEUKAEMIA
     Dosage: 400 MG, BID
     Route: 048
     Dates: start: 200901, end: 201405
  2. MACROBID [Suspect]
     Indication: URINARY TRACT INFECTION
  3. ANTI ALLERGIC AGENTS [Suspect]
     Indication: SINUS DISORDER
  4. CIPRO [Suspect]
     Indication: CYSTITIS
  5. DIAMICRON [Concomitant]
  6. METFORMIN [Concomitant]
  7. PREGABALIN [Concomitant]
  8. JANUVIA [Concomitant]
  9. VENTOLIN [Concomitant]
  10. SEREVENT [Concomitant]

REACTIONS (20)
  - Pneumonia [Unknown]
  - Cellulitis [Unknown]
  - Erythema [Unknown]
  - Peripheral swelling [Unknown]
  - Pulmonary congestion [Recovering/Resolving]
  - Dyspnoea [Recovering/Resolving]
  - Lung infection [Unknown]
  - Urinary tract infection [Recovered/Resolved]
  - Urethral pain [Unknown]
  - Urinary retention [Recovered/Resolved]
  - Abdominal pain [Recovered/Resolved]
  - Back pain [Unknown]
  - Drug hypersensitivity [Unknown]
  - Vaginal infection [Recovered/Resolved]
  - Vulvovaginal burning sensation [Unknown]
  - Vulvovaginal dryness [Unknown]
  - Blood potassium decreased [Unknown]
  - Acne [Unknown]
  - Constipation [Unknown]
  - Palpitations [Recovered/Resolved]
